FAERS Safety Report 8197174-6 (Version None)
Quarter: 2012Q1

REPORT INFORMATION
  Report Type: 
  Country: None (occurrence: None)
  Receive Date: 20120309
  Receipt Date: 20120305
  Transmission Date: 20120608
  Serious: Yes (Other)
  Sender: FDA-Public Use
  Company Number: AR-JNJFOC-20120111925

PATIENT
  Sex: Male
  Weight: 82.5 kg

DRUGS (14)
  1. DICLOFENAC SODIUM [Concomitant]
     Route: 048
     Dates: start: 20040401
  2. FOLIC ACID [Concomitant]
     Route: 048
     Dates: start: 20040203
  3. GOLIMUMAB [Suspect]
     Indication: RHEUMATOID ARTHRITIS
     Route: 058
     Dates: start: 20111005
  4. METHOTREXATE [Suspect]
     Indication: RHEUMATOID ARTHRITIS
     Route: 048
     Dates: start: 20071211, end: 20080520
  5. LEVOTHYROXINE SODIUM [Concomitant]
     Dates: start: 19980101
  6. TAMSULOSIN HCL [Concomitant]
     Route: 048
     Dates: start: 20080205
  7. IBANDRONATE SODIUM [Concomitant]
     Route: 048
     Dates: start: 20110713
  8. GOLIMUMAB [Suspect]
     Route: 058
     Dates: start: 20061206
  9. RANITIDINE [Concomitant]
     Route: 048
     Dates: start: 20040101
  10. VITAMIN D [Concomitant]
     Route: 048
     Dates: start: 20090128
  11. ERGOCALCIFEROL [Concomitant]
     Route: 048
     Dates: start: 20091230
  12. METHOTREXATE [Concomitant]
     Route: 048
     Dates: start: 20080521
  13. FLUCONAZOLE [Concomitant]
     Route: 048
     Dates: start: 20091101
  14. PREDNISONE [Concomitant]
     Route: 048
     Dates: start: 20060325

REACTIONS (1)
  - PROSTATE CANCER [None]
